FAERS Safety Report 5581698-1 (Version None)
Quarter: 2008Q1

REPORT INFORMATION
  Report Type: 
  Country: None (occurrence: None)
  Receive Date: 20080104
  Receipt Date: 20080102
  Transmission Date: 20080703
  Serious: Yes (Death, Other)
  Sender: FDA-Public Use
  Company Number: US-ASTRAZENECA-2008UW00182

PATIENT
  Age: 77 Year
  Sex: Female

DRUGS (6)
  1. IRESSA [Suspect]
     Indication: LUNG NEOPLASM MALIGNANT
     Route: 048
  2. NUTRIENTS BASED FROM VEGETABLE PRODUCTS [Concomitant]
  3. SPIROLINA [Concomitant]
  4. CHOCOLATE [Concomitant]
  5. MEDICINAL MARIJUANA [Concomitant]
  6. MELATONIN [Concomitant]

REACTIONS (4)
  - DISEASE PROGRESSION [None]
  - DRUG TOXICITY [None]
  - HALLUCINATION [None]
  - INSOMNIA [None]
